FAERS Safety Report 9635472 (Version 1)
Quarter: 2013Q4

REPORT INFORMATION
  Report Type: Spontaneous
  Country: US (occurrence: US)
  Receive Date: 20131021
  Receipt Date: 20131021
  Transmission Date: 20140711
  Serious: Yes (Hospitalization)
  Sender: FDA-Public Use
  Company Number: US-BAYER-2013-125725

PATIENT
  Age: 18 Year
  Sex: Female

DRUGS (4)
  1. BEYAZ [Suspect]
  2. YAZ [Suspect]
  3. PREDNISONE [Concomitant]
     Dosage: 20 MG, TAKE 2 TABLET EVERY DAY
     Route: 048
     Dates: start: 20121218
  4. AZATHIOPRINE [Concomitant]
     Dosage: 50 MG, TKE 4 TABLET EVERY DAY
     Route: 048
     Dates: start: 20101025, end: 20120512

REACTIONS (1)
  - Pulmonary embolism [None]
